FAERS Safety Report 25510937 (Version 2)
Quarter: 2025Q4

REPORT INFORMATION
  Report Type: Report from Study
  Country: US (occurrence: US)
  Receive Date: 20250703
  Receipt Date: 20251218
  Transmission Date: 20260117
  Serious: Yes (Other)
  Sender: MERCK SHARP & DOHME LLC
  Company Number: US-009507513-2301059

PATIENT
  Age: 78 Year
  Sex: Female

DRUGS (14)
  1. KEYTRUDA [Suspect]
     Active Substance: PEMBROLIZUMAB
     Indication: Neoplasm malignant
     Dates: start: 202102, end: 202102
  2. VABYSMO, [Concomitant]
  3. AVASTIN [Concomitant]
     Active Substance: BEVACIZUMAB
  4. METOPROLOL SUCCINATE [Concomitant]
     Active Substance: METOPROLOL SUCCINATE
  5. PRIMIDONE [Concomitant]
     Active Substance: PRIMIDONE
  6. PREDNISONE [Concomitant]
     Active Substance: PREDNISONE
  7. ALENDRONATE [Concomitant]
     Active Substance: ALENDRONATE SODIUM
  8. Vista AREDS-2 [Concomitant]
  9. Vita-Joy Gummy Multivitamin [Concomitant]
  10. BIOTIN [Concomitant]
     Active Substance: BIOTIN
  11. Calcium with D3 and zinc [Concomitant]
  12. FLUTICASONE [Concomitant]
     Active Substance: FLUTICASONE
  13. TYLENOL [Concomitant]
     Active Substance: ACETAMINOPHEN
  14. ATORVASTATIN [Concomitant]
     Active Substance: ATORVASTATIN

REACTIONS (2)
  - Neovascular age-related macular degeneration [Unknown]
  - Therapy cessation [Unknown]
